FAERS Safety Report 8120696-0 (Version None)
Quarter: 2012Q1

REPORT INFORMATION
  Report Type: 
  Country: None (occurrence: None)
  Receive Date: 20120207
  Receipt Date: 20120130
  Transmission Date: 20120608
  Serious: Yes (Hospitalization, Other)
  Sender: FDA-Public Use
  Company Number: CA-ROCHE-1022052

PATIENT
  Sex: Male
  Weight: 74.91 kg

DRUGS (17)
  1. CRESTOR [Concomitant]
     Indication: LIPIDS INCREASED
     Route: 048
  2. FOLIC ACID [Concomitant]
  3. METHOTREXATE [Concomitant]
  4. PREDNISONE [Concomitant]
     Indication: RHEUMATOID ARTHRITIS
     Route: 048
  5. VITAMIN D [Concomitant]
  6. PLAVIX [Concomitant]
     Route: 048
     Dates: start: 20111223
  7. LISINOPRIL [Concomitant]
     Indication: HYPERTENSION
     Route: 048
  8. ASPIRIN [Concomitant]
     Dosage: 21/OCT/2005
     Route: 048
  9. TRAMADOL HCL [Concomitant]
  10. ACTEMRA [Suspect]
     Route: 042
  11. SLOW-K [Concomitant]
     Route: 048
     Dates: start: 20100210
  12. STEROID (UNK INGREDIENTS) [Concomitant]
     Route: 058
     Dates: start: 20110701
  13. FENOFIBRATE [Concomitant]
     Indication: LIPIDS INCREASED
     Route: 048
     Dates: start: 20090826
  14. METOPROLOL TARTRATE [Concomitant]
     Indication: HYPERTENSION
     Route: 048
     Dates: start: 20091009
  15. CELEXA [Concomitant]
     Indication: DEPRESSION
     Route: 048
  16. ACTEMRA [Suspect]
     Indication: RHEUMATOID ARTHRITIS
     Dosage: THERAPY INTERRUPTED DUE TO AE
     Route: 042
  17. ASPIRIN [Concomitant]

REACTIONS (4)
  - CHEST PAIN [None]
  - RHEUMATOID ARTHRITIS [None]
  - DYSPNOEA [None]
  - LUNG NEOPLASM [None]
